FAERS Safety Report 16993364 (Version 2)
Quarter: 2020Q1

REPORT INFORMATION
  Report Type: Spontaneous
  Country: IE (occurrence: GB)
  Receive Date: 20191105
  Receipt Date: 20200110
  Transmission Date: 20200409
  Serious: No
  Sender: FDA-Public Use
  Company Number: GB-BEH-2019108835

PATIENT
  Age: 50 Year
  Sex: Female

DRUGS (11)
  1. RESPREEZA [Suspect]
     Active Substance: .ALPHA.1-PROTEINASE INHIBITOR HUMAN
     Dosage: DOUBLE DOSE
     Route: 065
     Dates: start: 20180731, end: 20180731
  2. RESPREEZA [Suspect]
     Active Substance: .ALPHA.1-PROTEINASE INHIBITOR HUMAN
     Dosage: DOUBLE DOSE
     Route: 065
     Dates: start: 20190709, end: 20190709
  3. RESPREEZA [Suspect]
     Active Substance: .ALPHA.1-PROTEINASE INHIBITOR HUMAN
     Dosage: 91.4 MILLILITER
     Route: 042
     Dates: start: 2016
  4. RESPREEZA [Suspect]
     Active Substance: .ALPHA.1-PROTEINASE INHIBITOR HUMAN
     Dosage: DOUBLE DOSE
     Route: 065
     Dates: start: 20180529, end: 20180529
  5. RESPREEZA [Suspect]
     Active Substance: .ALPHA.1-PROTEINASE INHIBITOR HUMAN
     Dosage: DOUBLE DOSE
     Route: 065
     Dates: start: 20190724, end: 20190724
  6. RESPREEZA [Suspect]
     Active Substance: .ALPHA.1-PROTEINASE INHIBITOR HUMAN
     Dosage: DOUBLE DOSE
     Route: 065
     Dates: start: 20181218, end: 20181218
  7. RESPREEZA [Suspect]
     Active Substance: .ALPHA.1-PROTEINASE INHIBITOR HUMAN
     Dosage: 190.6 MILLILITER
     Route: 042
     Dates: start: 201610
  8. RESPREEZA [Suspect]
     Active Substance: .ALPHA.1-PROTEINASE INHIBITOR HUMAN
     Indication: ALPHA-1 ANTI-TRYPSIN DEFICIENCY
     Dosage: DOUBLE DOSE
     Route: 065
     Dates: start: 20171220, end: 20171220
  9. RESPREEZA [Suspect]
     Active Substance: .ALPHA.1-PROTEINASE INHIBITOR HUMAN
     Dosage: DOUBLE DOSE
     Route: 065
     Dates: start: 20190820, end: 20190820
  10. RESPREEZA [Suspect]
     Active Substance: .ALPHA.1-PROTEINASE INHIBITOR HUMAN
     Dosage: DOUBLE DOSE
     Route: 042
     Dates: start: 20191029, end: 20191029
  11. RESPREEZA [Suspect]
     Active Substance: .ALPHA.1-PROTEINASE INHIBITOR HUMAN
     Dosage: DOUBLE DOSE
     Route: 065
     Dates: start: 20191223, end: 20191223

REACTIONS (3)
  - No adverse event [Unknown]
  - Intentional overdose [Unknown]
  - Off label use [Unknown]
